FAERS Safety Report 4881180-0 (Version None)
Quarter: 2006Q1

REPORT INFORMATION
  Report Type: 
  Country: None (occurrence: None)
  Receive Date: 20060111
  Receipt Date: 20060111
  Transmission Date: 20060701
  Serious: Yes (Hospitalization, Disabling)
  Sender: FDA-Public Use
  Company Number: None

PATIENT
  Age: 65 Year
  Sex: Male
  Weight: 130 kg

DRUGS (1)
  1. ULTRAVIST 150 [Suspect]
     Indication: COMPUTERISED TOMOGRAM
     Dosage: IV     (ONCE)
     Route: 042
     Dates: start: 20051110, end: 20051110

REACTIONS (3)
  - BLOOD CREATININE INCREASED [None]
  - CONTRAST MEDIA REACTION [None]
  - NEPHROPATHY [None]
